FAERS Safety Report 8000516-5 (Version None)
Quarter: 2011Q4

REPORT INFORMATION
  Report Type: 
  Country: None (occurrence: None)
  Receive Date: 20111222
  Receipt Date: 20111010
  Transmission Date: 20120403
  Serious: No
  Sender: FDA-Public Use
  Company Number: US-BAYER-2011-097616

PATIENT
  Sex: Female

DRUGS (2)
  1. PENTASA [Concomitant]
     Indication: CROHN'S DISEASE
  2. AVELOX [Suspect]
     Indication: SINUSITIS
     Dosage: 400 MG, QD
     Route: 048
     Dates: start: 20111007

REACTIONS (1)
  - MALAISE [None]
